FAERS Safety Report 12463448 (Version 1)
Quarter: 2016Q2

REPORT INFORMATION
  Report Type: Spontaneous
  Country: CA (occurrence: None)
  Receive Date: 20160613
  Receipt Date: 20160613
  Transmission Date: 20160815
  Serious: Yes (Disabling)
  Sender: FDA-Public Use
  Company Number: None

PATIENT
  Age: 56 Year
  Sex: Male
  Weight: 81.65 kg

DRUGS (1)
  1. OMNARIS [Suspect]
     Active Substance: CICLESONIDE
     Indication: RHINITIS
     Dosage: 60 SPRAY(S) ONCE A DAY INHALATION
     Route: 055
     Dates: start: 20160601, end: 20160612

REACTIONS (4)
  - Fatigue [None]
  - Muscular weakness [None]
  - Alcohol poisoning [None]
  - Alcohol interaction [None]

NARRATIVE: CASE EVENT DATE: 20160612
